FAERS Safety Report 5824043-6 (Version None)
Quarter: 2008Q3

REPORT INFORMATION
  Report Type: 
  Country: None (occurrence: None)
  Receive Date: 20080728
  Receipt Date: 20080723
  Transmission Date: 20090109
  Serious: Yes (Death, Other)
  Sender: FDA-Public Use
  Company Number: US-BRISTOL-MYERS SQUIBB COMPANY-14208193

PATIENT
  Sex: Female

DRUGS (5)
  1. REYATAZ [Suspect]
     Indication: ANTIRETROVIRAL THERAPY
     Route: 064
     Dates: end: 20080227
  2. EPIVIR [Suspect]
     Indication: ANTIRETROVIRAL THERAPY
     Dosage: ALSO GIVEN - 25MG/DAY
     Route: 064
     Dates: start: 20080213, end: 20080213
  3. RETROVIR [Suspect]
     Indication: ANTIRETROVIRAL THERAPY
     Route: 064
     Dates: start: 20080213, end: 20080213
  4. KALETRA [Suspect]
     Indication: ANTIRETROVIRAL THERAPY
     Dosage: 1 DOSAGE FORM = 1 TABLET.
     Route: 064
     Dates: start: 20080227
  5. VIREAD [Suspect]
     Indication: ANTIRETROVIRAL THERAPY
     Dosage: DOSAGE FORM=TAB
     Route: 064
     Dates: start: 20080312

REACTIONS (6)
  - DEATH NEONATAL [None]
  - FOETAL CHROMOSOME ABNORMALITY [None]
  - PREGNANCY [None]
  - PREMATURE BABY [None]
  - RESPIRATORY DISTRESS [None]
  - TRISOMY 21 [None]
